FAERS Safety Report 12648313 (Version 2)
Quarter: 2016Q4

REPORT INFORMATION
  Report Type: Spontaneous
  Country: JP (occurrence: JP)
  Receive Date: 20160812
  Receipt Date: 20161209
  Transmission Date: 20170207
  Serious: Yes (Other)
  Sender: FDA-Public Use
  Company Number: JP-009507513-1608JPN006268

PATIENT
  Age: 77 Year
  Sex: Male

DRUGS (19)
  1. URIEF [Concomitant]
     Active Substance: SILODOSIN
  2. TIMOLOL MALEATE. [Concomitant]
     Active Substance: TIMOLOL MALEATE
  3. MUCOSTA [Concomitant]
     Active Substance: REBAMIPIDE
  4. METGLUCO [Concomitant]
     Active Substance: METFORMIN HYDROCHLORIDE
  5. UBRETID [Concomitant]
     Active Substance: DISTIGMINE BROMIDE
  6. CELECOX [Concomitant]
     Active Substance: CELECOXIB
  7. CLOPIDOGREL [Concomitant]
     Active Substance: CLOPIDOGREL BISULFATE
  8. NEXIUM [Concomitant]
     Active Substance: ESOMEPRAZOLE MAGNESIUM
  9. MENATETRENONE [Concomitant]
     Active Substance: MENATETRENONE
  10. ATORVASTATIN [Concomitant]
     Active Substance: ATORVASTATIN
  11. ASPARA CA [Concomitant]
  12. GLACTIV [Suspect]
     Active Substance: SITAGLIPTIN
     Dosage: 50 MG, DAILY
     Route: 048
     Dates: start: 201301
  13. ISOSORBIDE MONONITRATE. [Concomitant]
     Active Substance: ISOSORBIDE MONONITRATE
  14. AVOLVE [Concomitant]
     Active Substance: DUTASTERIDE
  15. DIQUAS [Concomitant]
     Active Substance: DIQUAFOSOL TETRASODIUM
  16. GLACTIV [Suspect]
     Active Substance: SITAGLIPTIN
     Indication: TYPE 2 DIABETES MELLITUS
     Dosage: 25 MG, DAILY
     Route: 048
     Dates: start: 201212, end: 201301
  17. EPALRESTAT [Concomitant]
     Active Substance: EPALRESTAT
  18. VOGLIBOSE [Concomitant]
     Active Substance: VOGLIBOSE
  19. HYALEIN [Concomitant]
     Active Substance: HYALURONATE SODIUM

REACTIONS (1)
  - Interstitial lung disease [Unknown]

NARRATIVE: CASE EVENT DATE: 201606
